FAERS Safety Report 6021078-8 (Version None)
Quarter: 2008Q4

REPORT INFORMATION
  Report Type: 
  Country: None (occurrence: None)
  Receive Date: 20081229
  Receipt Date: 20081218
  Transmission Date: 20090506
  Serious: Yes (Hospitalization, Disabling)
  Sender: FDA-Public Use
  Company Number: FR-PFIZER INC-2008157377

PATIENT

DRUGS (9)
  1. ATORVASTATIN CALCIUM [Suspect]
     Indication: HYPERCHOLESTEROLAEMIA
     Route: 048
     Dates: start: 20080730, end: 20080811
  2. CYCLOSPORINE [Suspect]
     Route: 048
     Dates: start: 20071101, end: 20080606
  3. MOPRAL [Concomitant]
  4. TRIATEC [Concomitant]
  5. DIFFU K [Concomitant]
  6. ALENDRONIC ACID [Concomitant]
  7. CALCITONIN [Concomitant]
  8. ASPEGIC 325 [Concomitant]
  9. DI-ANTALVIC [Concomitant]

REACTIONS (2)
  - CONDITION AGGRAVATED [None]
  - DERMATOMYOSITIS [None]
